FAERS Safety Report 4600400-0 (Version None)
Quarter: 2005Q1

REPORT INFORMATION
  Report Type: 
  Country: None (occurrence: None)
  Receive Date: 20050127
  Receipt Date: 20041012
  Transmission Date: 20050727
  Serious: No
  Sender: FDA-Public Use
  Company Number: USA041080843

PATIENT
  Age: 6 Year
  Sex: Male
  Weight: 20 kg

DRUGS (4)
  1. STRATTERA [Suspect]
     Indication: ATTENTION DEFICIT/HYPERACTIVITY DISORDER
     Dosage: 25 MG DAY
     Dates: start: 20040601
  2. MULTI-VITAMINS [Concomitant]
  3. VITAMIN C [Concomitant]
  4. ECHINACEA COMPLEX [Concomitant]

REACTIONS (5)
  - ANOREXIA [None]
  - DISTURBANCE IN ATTENTION [None]
  - FATIGUE [None]
  - MOOD SWINGS [None]
  - STOMACH DISCOMFORT [None]
